FAERS Safety Report 22078836 (Version 2)
Quarter: 2023Q1

REPORT INFORMATION
  Report Type: Report from Study
  Country: IT (occurrence: IT)
  Receive Date: 20230309
  Receipt Date: 20230316
  Transmission Date: 20230417
  Serious: Yes (Other)
  Sender: FDA-Public Use
  Company Number: None

PATIENT
  Age: 64 Year
  Sex: Female

DRUGS (9)
  1. TAVOR (LORAZEPAM) [Suspect]
     Active Substance: LORAZEPAM
     Dates: start: 20220101, end: 20221017
  2. LORMETAZEPAM [Suspect]
     Active Substance: LORMETAZEPAM
     Dates: start: 20220101, end: 20221017
  3. ZOLPIDEM TARTRATE [Suspect]
     Active Substance: ZOLPIDEM TARTRATE
     Dates: start: 20220101, end: 20221017
  4. ATORVASTATIN [Concomitant]
     Active Substance: ATORVASTATIN
  5. ESOMEPRAZOLE [Concomitant]
     Active Substance: ESOMEPRAZOLE
  6. DOMPERIDONE [Concomitant]
     Active Substance: DOMPERIDONE
  7. RAMIPRIL [Concomitant]
     Active Substance: RAMIPRIL
  8. ESIDREX [Concomitant]
     Active Substance: HYDROCHLOROTHIAZIDE
  9. ESCITALOPRAM [Concomitant]
     Active Substance: ESCITALOPRAM OXALATE

REACTIONS (3)
  - Sopor [Unknown]
  - Epilepsy [Unknown]
  - Drug abuse [Unknown]

NARRATIVE: CASE EVENT DATE: 20221017
